FAERS Safety Report 15720251 (Version 1)
Quarter: 2018Q4

REPORT INFORMATION
  Report Type: Spontaneous
  Country: NL (occurrence: NL)
  Receive Date: 20181213
  Receipt Date: 20181213
  Transmission Date: 20190205
  Serious: Yes (Disabling, Other)
  Sender: FDA-Public Use
  Company Number: NL-009507513-1812NLD004647

PATIENT
  Age: 70 Year
  Sex: Female

DRUGS (2)
  1. INEGY [Suspect]
     Active Substance: EZETIMIBE\SIMVASTATIN
     Dosage: 1 TABLET PER DAY
     Route: 048
     Dates: end: 2018
  2. ACIDO ALENDRONICO SANDOZ [Suspect]
     Active Substance: ALENDRONATE SODIUM
     Indication: LUMBAR VERTEBRAL FRACTURE
     Dosage: UNK
     Dates: start: 201803

REACTIONS (4)
  - Myalgia [Unknown]
  - Lumbar vertebral fracture [Unknown]
  - Arthralgia [Unknown]
  - Drug effect variable [Unknown]

NARRATIVE: CASE EVENT DATE: 2014
